FAERS Safety Report 4432093-X (Version None)
Quarter: 2004Q3

REPORT INFORMATION
  Report Type: 
  Country: None (occurrence: None)
  Receive Date: 20040818
  Receipt Date: 20040804
  Transmission Date: 20050211
  Serious: Yes (Hospitalization)
  Sender: FDA-Public Use
  Company Number: 701766

PATIENT
  Age: 75 Year
  Sex: Female
  Weight: 75.2971 kg

DRUGS (6)
  1. AMEVIVE [Suspect]
     Indication: PSORIASIS
     Dosage: 15 MG QW IM
     Dates: start: 20031110, end: 20040129
  2. LOTENSIN [Concomitant]
  3. ACIPHEX [Concomitant]
  4. CORDRAN [Concomitant]
  5. DESOWEN [Concomitant]
  6. CLOBETASOL [Concomitant]

REACTIONS (5)
  - DUODENITIS [None]
  - HEPATIC STEATOSIS [None]
  - HIATUS HERNIA [None]
  - PANCREATITIS [None]
  - TREATMENT NONCOMPLIANCE [None]
